FAERS Safety Report 10268574 (Version 1)
Quarter: 2014Q2

REPORT INFORMATION
  Report Type: Spontaneous
  Country: BR (occurrence: BR)
  Receive Date: 20140630
  Receipt Date: 20140630
  Transmission Date: 20141212
  Serious: Yes (Other)
  Sender: FDA-Public Use
  Company Number: BR-PFIZER INC-2014176228

PATIENT
  Age: 53 Year
  Sex: Female
  Weight: 65 kg

DRUGS (1)
  1. FRONTAL [Suspect]
     Indication: DEPRESSION
     Dosage: ONE TABLET (2 MG), DAILY OR AT 2.25 MG
     Route: 048
     Dates: start: 1994

REACTIONS (5)
  - Hypertension [Unknown]
  - Depression [Unknown]
  - Blood glucose increased [Recovered/Resolved]
  - Bone pain [Unknown]
  - Blood cholesterol abnormal [Unknown]
